FAERS Safety Report 9743162 (Version 2)
Quarter: 2015Q3

REPORT INFORMATION
  Report Type: Spontaneous
  Country: US (occurrence: US)
  Receive Date: 20131210
  Receipt Date: 20150804
  Transmission Date: 20151125
  Serious: No
  Sender: FDA-Public Use
  Company Number: US-GILEAD-2009-0024329

PATIENT
  Age: 28 Year
  Sex: Female
  Weight: 68.04 kg

DRUGS (22)
  1. SPIRONOLACTONE. [Concomitant]
     Active Substance: SPIRONOLACTONE
  2. PREDNISONE. [Concomitant]
     Active Substance: PREDNISONE
  3. NORVASC [Concomitant]
     Active Substance: AMLODIPINE BESYLATE
  4. AMBIEN [Concomitant]
     Active Substance: ZOLPIDEM TARTRATE
  5. BACTRIM DS [Concomitant]
     Active Substance: SULFAMETHOXAZOLE\TRIMETHOPRIM
  6. REVATIO [Concomitant]
     Active Substance: SILDENAFIL CITRATE
  7. POTASSIUM CHLORIDE. [Concomitant]
     Active Substance: POTASSIUM CHLORIDE
  8. FOLIC ACID. [Concomitant]
     Active Substance: FOLIC ACID
  9. ZYPREXA [Concomitant]
     Active Substance: OLANZAPINE
  10. IMURAN [Concomitant]
     Active Substance: AZATHIOPRINE
  11. PREVACID [Concomitant]
     Active Substance: LANSOPRAZOLE
  12. CALCITRIOL. [Concomitant]
     Active Substance: CALCITRIOL
  13. LASIX [Concomitant]
     Active Substance: FUROSEMIDE
  14. REMERON [Concomitant]
     Active Substance: MIRTAZAPINE
  15. LORTAB [Concomitant]
     Active Substance: ACETAMINOPHEN\HYDROCODONE BITARTRATE
  16. COUMADIN [Concomitant]
     Active Substance: WARFARIN SODIUM
  17. LYRICA [Concomitant]
     Active Substance: PREGABALIN
  18. BUSPAR [Concomitant]
     Active Substance: BUSPIRONE HYDROCHLORIDE
  19. PLAQUENIL [Concomitant]
     Active Substance: HYDROXYCHLOROQUINE SULFATE
  20. METHADONE [Concomitant]
     Active Substance: METHADONE HYDROCHLORIDE
  21. LETAIRIS [Suspect]
     Active Substance: AMBRISENTAN
     Indication: PULMONARY ARTERIAL HYPERTENSION
     Route: 048
     Dates: start: 20090713
  22. ALEVE [Concomitant]
     Active Substance: NAPROXEN SODIUM

REACTIONS (1)
  - Abdominal pain upper [Unknown]
